FAERS Safety Report 8077018-3 (Version None)
Quarter: 2012Q1

REPORT INFORMATION
  Report Type: 
  Country: None (occurrence: None)
  Receive Date: 20120127
  Receipt Date: 20120119
  Transmission Date: 20120608
  Serious: Yes (Other)
  Sender: FDA-Public Use
  Company Number: PHHY2012DE002213

PATIENT
  Age: 74 Year
  Sex: Male

DRUGS (3)
  1. CALCIUM [Concomitant]
  2. ZOLEDRONOC ACID [Suspect]
     Indication: OSTEOPOROSIS
     Dosage: 5 MG ONCE YEARLY
     Route: 042
     Dates: start: 20090101
  3. CALCIMAGON [Concomitant]

REACTIONS (1)
  - MYOCARDIAL INFARCTION [None]
